APPROVED DRUG PRODUCT: GUANFACINE HYDROCHLORIDE
Active Ingredient: GUANFACINE HYDROCHLORIDE
Strength: EQ 4MG BASE
Dosage Form/Route: TABLET, EXTENDED RELEASE;ORAL
Application: A213428 | Product #004 | TE Code: AB
Applicant: YICHANG HUMANWELL PHARMACEUTICAL CO LTD
Approved: Nov 25, 2020 | RLD: No | RS: No | Type: RX